FAERS Safety Report 5334517-2 (Version None)
Quarter: 2007Q2

REPORT INFORMATION
  Report Type: 
  Country: None (occurrence: None)
  Receive Date: 20070525
  Receipt Date: 20070521
  Transmission Date: 20071010
  Serious: Yes (Death, Hospitalization)
  Sender: FDA-Public Use
  Company Number: FRWYE725424MAY07

PATIENT
  Sex: Male

DRUGS (3)
  1. TAZOCILLINE [Suspect]
     Route: 042
     Dates: start: 20070410, end: 20070414
  2. CIFLOX [Suspect]
     Route: 042
     Dates: start: 20070410, end: 20070414
  3. TIENAM [Suspect]
     Dosage: UNKNOWN
     Route: 042
     Dates: start: 20070413, end: 20070419

REACTIONS (6)
  - CYSTITIS ESCHERICHIA [None]
  - DEATH [None]
  - EOSINOPHILIA [None]
  - PROTEUS INFECTION [None]
  - SEPTIC SHOCK [None]
  - STEVENS-JOHNSON SYNDROME [None]
